FAERS Safety Report 13821098 (Version 5)
Quarter: 2021Q4

REPORT INFORMATION
  Report Type: Spontaneous
  Country: US (occurrence: US)
  Receive Date: 20170801
  Receipt Date: 20211019
  Transmission Date: 20220304
  Serious: Yes (Life-Threatening, Other)
  Sender: FDA-Public Use
  Company Number: US-PFIZER INC-2017332237

PATIENT
  Age: 52 Year
  Sex: Male

DRUGS (2)
  1. LYRICA [Suspect]
     Active Substance: PREGABALIN
     Dosage: UNK
     Dates: start: 20170731
  2. LYRICA [Suspect]
     Active Substance: PREGABALIN
     Dosage: 300 MG, 3X/DAY
     Route: 048

REACTIONS (5)
  - Dyspepsia [Unknown]
  - Diabetes mellitus [Unknown]
  - Limb injury [Unknown]
  - Prescribed overdose [Unknown]
  - Pain [Unknown]
